FAERS Safety Report 8576068 (Version 2)
Quarter: 2012Q4

REPORT INFORMATION
  Report Type: 
  Country: BR (occurrence: BR)
  Receive Date: 20120523
  Receipt Date: 20121115
  Transmission Date: 20130627
  Serious: Yes (Hospitalization)
  Sender: FDA-Public Use
  Company Number: CA-ASTRAZENECA-2012SE30495

PATIENT
  Sex: Female

DRUGS (8)
  1. SELOZOK [Suspect]
     Dosage: DAILY
     Route: 048
     Dates: start: 2012
  2. BRILINTA [Suspect]
     Indication: ISCHAEMIC HEART DISEASE PROPHYLAXIS
     Route: 048
     Dates: start: 20120324, end: 201204
  3. BRILINTA [Suspect]
     Indication: ISCHAEMIC HEART DISEASE PROPHYLAXIS
     Route: 048
     Dates: start: 2012
  4. PRESSAT [Concomitant]
     Route: 048
  5. BENICAR [Concomitant]
     Indication: HYPERTENSION
  6. LIPITOR [Concomitant]
     Indication: PROMOTION OF PERIPHERAL CIRCULATION
  7. ASA PREVENT [Concomitant]
     Dosage: DAILY
     Route: 048
  8. PANTOPRAZOLE [Concomitant]

REACTIONS (7)
  - Infarction [Unknown]
  - Pain in extremity [Recovered/Resolved]
  - Back pain [Recovered/Resolved]
  - Chest discomfort [Recovered/Resolved]
  - Blood glucose increased [Unknown]
  - Blood uric acid increased [Unknown]
  - Drug dose omission [Unknown]
